FAERS Safety Report 17004921 (Version 1)
Quarter: 2019Q4

REPORT INFORMATION
  Report Type: Spontaneous
  Country: US (occurrence: US)
  Receive Date: 20190925
  Receipt Date: 20190925
  Transmission Date: 20200122
  Serious: Yes (Hospitalization)
  Sender: FDA-Public Use
  Company Number: None

PATIENT
  Sex: Female

DRUGS (7)
  1. CELEBREX [Concomitant]
     Active Substance: CELECOXIB
  2. METHOTREXATE. [Concomitant]
     Active Substance: METHOTREXATE
  3. FLUTICASONE. [Concomitant]
     Active Substance: FLUTICASONE
  4. GABAPENTIN. [Concomitant]
     Active Substance: GABAPENTIN
  5. CELECOXIB. [Concomitant]
     Active Substance: CELECOXIB
  6. LISINOPRIL. [Concomitant]
     Active Substance: LISINOPRIL
  7. HUMIRA [Suspect]
     Active Substance: ADALIMUMAB
     Indication: PSORIATIC ARTHROPATHY
     Route: 058
     Dates: start: 20170721

REACTIONS (3)
  - Therapy cessation [None]
  - Pain [None]
  - Intervertebral disc operation [None]
